FAERS Safety Report 16387968 (Version 2)
Quarter: 2022Q1

REPORT INFORMATION
  Report Type: Spontaneous
  Country: CA (occurrence: CA)
  Receive Date: 20190604
  Receipt Date: 20220210
  Transmission Date: 20220423
  Serious: Yes (Other)
  Sender: FDA-Public Use
  Company Number: CA-AUROBINDO-AUR-APL-2019-029820

PATIENT
  Sex: Male

DRUGS (3)
  1. PRAMIPEXOLE [Suspect]
     Active Substance: PRAMIPEXOLE
     Indication: Parkinson^s disease
     Dosage: UNK
     Route: 065
  2. ROPINIROLE [Suspect]
     Active Substance: ROPINIROLE
     Indication: Parkinson^s disease
     Dosage: UNK
     Route: 065
  3. ROTIGOTINE [Suspect]
     Active Substance: ROTIGOTINE
     Indication: Parkinson^s disease
     Dosage: UNK
     Route: 065

REACTIONS (2)
  - Impulse-control disorder [Recovering/Resolving]
  - Drug withdrawal syndrome [Recovering/Resolving]
